FAERS Safety Report 8682020 (Version 4)
Quarter: 2014Q2

REPORT INFORMATION
  Report Type: Spontaneous
  Country: BR (occurrence: BR)
  Receive Date: 20120725
  Receipt Date: 20140613
  Transmission Date: 20141212
  Serious: Yes (Hospitalization, Other)
  Sender: FDA-Public Use
  Company Number: BR-ROCHE-1090149

PATIENT
  Sex: Male
  Weight: 71 kg

DRUGS (9)
  1. XOLAIR [Suspect]
     Indication: ASTHMA
     Dosage: 1 AMPOULE
     Route: 065
  2. XOLAIR [Suspect]
     Indication: DYSPNOEA
     Route: 058
     Dates: start: 20131015
  3. XOLAIR [Suspect]
     Route: 058
     Dates: start: 20140603, end: 20140603
  4. FORASEQ (BRAZIL) [Concomitant]
     Indication: ASTHMA
     Dosage: 12/400 MCG
     Route: 065
  5. FORASEQ (BRAZIL) [Concomitant]
     Indication: DYSPNOEA
  6. BAMIFIX [Concomitant]
  7. LOSARTAN [Concomitant]
  8. DISGREN (BRAZIL) [Concomitant]
  9. MIFLONIDE [Concomitant]

REACTIONS (12)
  - Pneumonia [Recovering/Resolving]
  - Asthma [Recovering/Resolving]
  - Ischaemia [Not Recovered/Not Resolved]
  - Blood pressure increased [Recovering/Resolving]
  - Dysphonia [Not Recovered/Not Resolved]
  - Nasopharyngitis [Recovering/Resolving]
  - Malaise [Recovering/Resolving]
  - Cough [Not Recovered/Not Resolved]
  - Aspiration bronchial [Not Recovered/Not Resolved]
  - Amyotrophic lateral sclerosis [Not Recovered/Not Resolved]
  - Speech disorder [Not Recovered/Not Resolved]
  - Dysphagia [Not Recovered/Not Resolved]
